FAERS Safety Report 5395227-9 (Version None)
Quarter: 2007Q3

REPORT INFORMATION
  Report Type: 
  Country: None (occurrence: None)
  Receive Date: 20070724
  Receipt Date: 20070710
  Transmission Date: 20080115
  Serious: Yes (Other)
  Sender: FDA-Public Use
  Company Number: US-ELI_LILLY_AND_COMPANY-US200707002360

PATIENT
  Sex: Female

DRUGS (2)
  1. FORTEO [Suspect]
     Dosage: UNK, UNK
     Dates: start: 20061001
  2. COUMADIN [Concomitant]

REACTIONS (5)
  - ARTHRALGIA [None]
  - MACULAR DEGENERATION [None]
  - MUSCLE SPASMS [None]
  - PAIN IN EXTREMITY [None]
  - VISUAL ACUITY REDUCED [None]
